APPROVED DRUG PRODUCT: ALLOPURINOL SODIUM
Active Ingredient: ALLOPURINOL SODIUM
Strength: EQ 500MG BASE/VIAL
Dosage Form/Route: INJECTABLE;INJECTION
Application: A212363 | Product #001 | TE Code: AP
Applicant: GLAND PHARMA LTD
Approved: Jan 26, 2022 | RLD: No | RS: No | Type: RX